FAERS Safety Report 5731635-1 (Version None)
Quarter: 2008Q2

REPORT INFORMATION
  Report Type: 
  Country: None (occurrence: None)
  Receive Date: 20080508
  Receipt Date: 20080502
  Transmission Date: 20081010
  Serious: Yes (Other)
  Sender: FDA-Public Use
  Company Number: PHHY2008AU01761

PATIENT
  Age: 8 Year
  Sex: Female

DRUGS (3)
  1. EXJADE [Suspect]
     Indication: IRON OVERLOAD
  2. EXJADE [Suspect]
     Dosage: 10 MG/ KG
  3. EXJADE [Suspect]
     Dosage: 20 MG/ KG

REACTIONS (7)
  - AMINOACIDURIA [None]
  - HYPOKALAEMIA [None]
  - HYPOPHOSPHATAEMIA [None]
  - PROTEINURIA [None]
  - RENAL TUBULAR DISORDER [None]
  - URINE AMINO ACID LEVEL INCREASED [None]
  - URINE PHOSPHATE INCREASED [None]
